FAERS Safety Report 10986456 (Version 1)
Quarter: 2015Q2

REPORT INFORMATION
  Report Type: Spontaneous
  Country: RO (occurrence: None)
  Receive Date: 20150402
  Receipt Date: 20150402
  Transmission Date: 20150821
  Serious: Yes (Death, Hospitalization, Other)
  Sender: FDA-Public Use
  Company Number: 2015CDR00001

PATIENT
  Age: 56 Year
  Sex: Female

DRUGS (2)
  1. METHIMAZOLE. [Suspect]
     Active Substance: METHIMAZOLE
     Indication: HYPERTHYROIDISM
     Dosage: 1X/DAY
     Route: 048
  2. METHIMAZOLE. [Suspect]
     Active Substance: METHIMAZOLE
     Indication: BASEDOW^S DISEASE
     Dosage: 1X/DAY
     Route: 048

REACTIONS (2)
  - Plasma cell myeloma [None]
  - Agranulocytosis [None]
